FAERS Safety Report 5219734-4 (Version None)
Quarter: 2006Q4

REPORT INFORMATION
  Report Type: 
  Country: None (occurrence: None)
  Receive Date: 20061201
  Receipt Date: 20060730
  Transmission Date: 20070319
  Serious: No
  Sender: FDA-Public Use
  Company Number: 2006PV018450

PATIENT
  Age: 75 Year
  Sex: Male
  Weight: 77.5651 kg

DRUGS (7)
  1. BYETTA [Suspect]
     Indication: DIABETES MELLITUS NON-INSULIN-DEPENDENT
     Dosage: 10 MCG; 5 MCG  : BID;SC
     Route: 058
     Dates: start: 20060602, end: 20060701
  2. BYETTA [Suspect]
     Indication: DIABETES MELLITUS NON-INSULIN-DEPENDENT
     Dosage: 10 MCG; 5 MCG  : BID;SC
     Route: 058
     Dates: start: 20060701
  3. ACTOS [Concomitant]
  4. GLIPIZIDE [Concomitant]
  5. METOPROLOL SUCCINATE [Concomitant]
  6. GERAGE [Concomitant]
  7. UNKNOWN ANXIETY MEDICATION [Concomitant]

REACTIONS (3)
  - BLOOD GLUCOSE INCREASED [None]
  - HEART RATE INCREASED [None]
  - WEIGHT DECREASED [None]
